FAERS Safety Report 9663538 (Version 1)
Quarter: 2013Q4

REPORT INFORMATION
  Report Type: Spontaneous
  Country: US (occurrence: US)
  Receive Date: 20131101
  Receipt Date: 20131101
  Transmission Date: 20140711
  Serious: No
  Sender: FDA-Public Use
  Company Number: US-ENDO PHARMACEUTICALS INC.-CLOZ20130004

PATIENT
  Sex: Female

DRUGS (1)
  1. CLONAZEPAM 2MG [Suspect]
     Indication: ANXIETY
     Dosage: 2 MG
     Route: 048

REACTIONS (2)
  - Agitation [Recovered/Resolved]
  - Drug ineffective [Recovered/Resolved]
